FAERS Safety Report 22345623 (Version 1)
Quarter: 2023Q2

REPORT INFORMATION
  Report Type: Spontaneous
  Country: GB (occurrence: GB)
  Receive Date: 20230519
  Receipt Date: 20230519
  Transmission Date: 20230722
  Serious: Yes (Hospitalization)
  Sender: FDA-Public Use
  Company Number: GB-BIOGEN-2022BI01126701

PATIENT
  Age: 47 Year
  Sex: Male

DRUGS (5)
  1. TOFERSEN [Suspect]
     Active Substance: TOFERSEN
     Indication: Familial amyotrophic lateral sclerosis
     Route: 050
     Dates: start: 20220407
  2. TOFERSEN [Suspect]
     Active Substance: TOFERSEN
     Route: 050
     Dates: start: 20220505
  3. RILUZOLE [Concomitant]
     Active Substance: RILUZOLE
     Indication: Product used for unknown indication
     Route: 050
     Dates: start: 201606
  4. QUININE [Concomitant]
     Active Substance: QUININE
     Indication: Product used for unknown indication
     Route: 050
     Dates: start: 201606
  5. PREDNISOLONE [Concomitant]
     Active Substance: PREDNISOLONE
     Indication: Myelitis
     Dosage: IN THE MORNING
     Route: 050

REACTIONS (1)
  - Multiple sclerosis [Recovered/Resolved]

NARRATIVE: CASE EVENT DATE: 20220507
